FAERS Safety Report 12555923 (Version 3)
Quarter: 2016Q3

REPORT INFORMATION
  Report Type: Spontaneous
  Country: US (occurrence: US)
  Receive Date: 20160714
  Receipt Date: 20160808
  Transmission Date: 20161109
  Serious: No
  Sender: FDA-Public Use
  Company Number: US-BEH-2016058345

PATIENT
  Age: 24 Year
  Sex: Female
  Weight: 177 kg

DRUGS (17)
  1. MEDROL [Concomitant]
     Active Substance: METHYLPREDNISOLONE
  2. LAMOTRIGINE. [Concomitant]
     Active Substance: LAMOTRIGINE
  3. FLUDROCORTISONE [Concomitant]
     Active Substance: FLUDROCORTISONE
  4. DIPHENHYDRAMINE. [Concomitant]
     Active Substance: DIPHENHYDRAMINE
  5. TRAZODONE [Concomitant]
     Active Substance: TRAZODONE HYDROCHLORIDE
  6. ACETAMINOPHEN. [Concomitant]
     Active Substance: ACETAMINOPHEN
  7. LMX [Concomitant]
     Active Substance: LIDOCAINE
  8. FAMVIR [Concomitant]
     Active Substance: FAMCICLOVIR
  9. CLONAZEPAM. [Concomitant]
     Active Substance: CLONAZEPAM
  10. EPIPEN [Concomitant]
     Active Substance: EPINEPHRINE
  11. METOPROLOL. [Concomitant]
     Active Substance: METOPROLOL
  12. BIAXIN [Concomitant]
     Active Substance: CLARITHROMYCIN
  13. ACYCLOVIR. [Concomitant]
     Active Substance: ACYCLOVIR
  14. HIZENTRA [Suspect]
     Active Substance: HUMAN IMMUNOGLOBULIN G
     Route: 058
     Dates: start: 20130110
  15. CLINDAMYCIN [Concomitant]
     Active Substance: CLINDAMYCIN\CLINDAMYCIN PHOSPHATE
  16. VALTREX [Concomitant]
     Active Substance: VALACYCLOVIR HYDROCHLORIDE
  17. BACTRIM [Concomitant]
     Active Substance: SULFAMETHOXAZOLE\TRIMETHOPRIM

REACTIONS (1)
  - Sinusitis [Unknown]

NARRATIVE: CASE EVENT DATE: 201512
